FAERS Safety Report 4977530-7 (Version None)
Quarter: 2006Q2

REPORT INFORMATION
  Report Type: 
  Country: None (occurrence: None)
  Receive Date: 20060414
  Receipt Date: 20060331
  Transmission Date: 20061013
  Serious: Yes (Hospitalization, Other)
  Sender: FDA-Public Use
  Company Number: 2006AL000901

PATIENT
  Age: 45 Year
  Sex: Female

DRUGS (1)
  1. PROPYLTHIOURACIL TABLETS, 50 MG (PUREPAC) (PROPYLTHIOURACIL TABLETS, 5 [Suspect]
     Indication: HYPERTHYROIDISM
     Dosage: 300 MG; QD; PO

REACTIONS (11)
  - ANTINEUTROPHIL CYTOPLASMIC ANTIBODY POSITIVE [None]
  - C-REACTIVE PROTEIN INCREASED [None]
  - DISEASE RECURRENCE [None]
  - DYSPHAGIA [None]
  - HYPERTHYROIDISM [None]
  - MOUTH ULCERATION [None]
  - PHARYNGEAL ULCERATION [None]
  - RED BLOOD CELL SEDIMENTATION RATE INCREASED [None]
  - SKIN NECROSIS [None]
  - VASCULITIS [None]
  - WHITE BLOOD CELL COUNT DECREASED [None]
